FAERS Safety Report 4464693-5 (Version None)
Quarter: 2004Q3

REPORT INFORMATION
  Report Type: 
  Country: None (occurrence: None)
  Receive Date: 20040929
  Receipt Date: 20040910
  Transmission Date: 20050211
  Serious: Yes (Hospitalization)
  Sender: FDA-Public Use
  Company Number: USA040876481

PATIENT
  Age: 16 Year
  Sex: Female
  Weight: 48 kg

DRUGS (2)
  1. STRATTERA [Suspect]
     Indication: ATTENTION DEFICIT/HYPERACTIVITY DISORDER
     Dosage: 100 MG/1 DAY
     Dates: start: 20031001
  2. MULTI-VITAMIN [Concomitant]

REACTIONS (4)
  - CONTUSION [None]
  - MENORRHAGIA [None]
  - VON WILLEBRAND'S DISEASE [None]
  - WEIGHT DECREASED [None]
